FAERS Safety Report 19047525 (Version 1)
Quarter: 2021Q1

REPORT INFORMATION
  Report Type: Spontaneous
  Country: PL (occurrence: PL)
  Receive Date: 20210323
  Receipt Date: 20210323
  Transmission Date: 20210420
  Serious: Yes (Hospitalization)
  Sender: FDA-Public Use
  Company Number: PL-SA-2021SA095188

PATIENT
  Age: 33 Year
  Sex: Male
  Weight: 141 kg

DRUGS (1)
  1. OXALIPLATIN. [Suspect]
     Active Substance: OXALIPLATIN
     Dosage: 219 MG
     Route: 042
     Dates: start: 20180912

REACTIONS (4)
  - Feeling cold [Recovered/Resolved]
  - Mood altered [Recovered/Resolved]
  - Chills [Recovered/Resolved]
  - Pyrexia [Recovered/Resolved]

NARRATIVE: CASE EVENT DATE: 20180912
